FAERS Safety Report 7790900-7 (Version None)
Quarter: 2011Q3

REPORT INFORMATION
  Report Type: 
  Country: None (occurrence: None)
  Receive Date: 20110930
  Receipt Date: 20110921
  Transmission Date: 20111222
  Serious: Yes (Other)
  Sender: FDA-Public Use
  Company Number: US-BAYER-2011-088957

PATIENT
  Sex: Female

DRUGS (2)
  1. MIRENA [Suspect]
     Dosage: UNK
     Route: 015
  2. PENICILLIN [Suspect]
     Indication: PHARYNGITIS

REACTIONS (3)
  - PHARYNGITIS [None]
  - VAGINAL HAEMORRHAGE [None]
  - MENORRHAGIA [None]
